FAERS Safety Report 16600434 (Version 2)
Quarter: 2019Q3

REPORT INFORMATION
  Report Type: Spontaneous
  Country: NL (occurrence: NL)
  Receive Date: 20190720
  Receipt Date: 20190913
  Transmission Date: 20191004
  Serious: Yes (Other)
  Sender: FDA-Public Use
  Company Number: NL-TEVA-2019-NL-1079728

PATIENT
  Age: 79 Year
  Sex: Male

DRUGS (3)
  1. TAMSULOSINE [Suspect]
     Active Substance: TAMSULOSIN HYDROCHLORIDE
     Indication: PRODUCT USED FOR UNKNOWN INDICATION
  2. CLOPIDOGREL [Concomitant]
     Active Substance: CLOPIDOGREL BISULFATE
  3. LOSARTAN. [Concomitant]
     Active Substance: LOSARTAN

REACTIONS (1)
  - Interstitial lung disease [Unknown]
